FAERS Safety Report 7430334-8 (Version None)
Quarter: 2011Q2

REPORT INFORMATION
  Report Type: 
  Country: None (occurrence: None)
  Receive Date: 20110421
  Receipt Date: 20100511
  Transmission Date: 20111010
  Serious: No
  Sender: FDA-Public Use
  Company Number: US-ASTRAZENECA-2010SE21721

PATIENT
  Age: 25793 Day
  Sex: Male

DRUGS (10)
  1. FUROSEMIDE [Suspect]
     Indication: PRODUCT USED FOR UNKNOWN INDICATION
     Route: 065
  2. TAZTIA XT [Suspect]
     Indication: HYPERTENSION
     Dosage: EVERY MORNING
     Route: 048
     Dates: start: 20050101
  3. AVODART [Suspect]
     Indication: PROSTATIC DISORDER
     Route: 048
     Dates: start: 20070101
  4. ZETIA [Suspect]
     Indication: CARDIAC DISORDER
     Route: 048
     Dates: start: 20060101
  5. QUINAPRIL [Suspect]
     Indication: HYPERTENSION
     Route: 048
     Dates: start: 20030101
  6. ALPRAZOLAM [Suspect]
     Indication: NERVOUSNESS
     Dosage: 1 TABLET EVERY AFTERNOON
     Route: 048
     Dates: start: 19880101
  7. ARICEPT [Suspect]
     Indication: AMNESIA
     Route: 065
  8. METOPROLOL TARTRATE [Suspect]
     Indication: HYPERTENSION
     Route: 048
     Dates: start: 20050101
  9. POTASSIUM CHLORIDE [Suspect]
     Indication: MINERAL SUPPLEMENTATION
     Dosage: 2 CAPSULES TWO TIMES A DAY
     Route: 048
     Dates: start: 20050101
  10. UROXATRAL [Suspect]
     Indication: DYSURIA
     Route: 065

REACTIONS (8)
  - EYE IRRITATION [None]
  - ABDOMINAL DISCOMFORT [None]
  - ERYTHEMA [None]
  - DIARRHOEA [None]
  - OEDEMA PERIPHERAL [None]
  - HEADACHE [None]
  - NAUSEA [None]
  - DIZZINESS [None]
